FAERS Safety Report 9095651 (Version 3)
Quarter: 2013Q2

REPORT INFORMATION
  Report Type: Spontaneous
  Country: US (occurrence: US)
  Receive Date: 20130219
  Receipt Date: 20130621
  Transmission Date: 20140414
  Serious: Yes (Other)
  Sender: FDA-Public Use
  Company Number: US-PFIZER INC-2012073657

PATIENT
  Age: 61 Year
  Sex: Female
  Weight: 109.75 kg

DRUGS (2)
  1. LYRICA [Suspect]
     Indication: FIBROMYALGIA
     Dosage: 150 MG, 3X/DAY
     Route: 048
     Dates: start: 2008
  2. LYRICA [Suspect]
     Indication: PAIN
     Dosage: 150 MG, 3X/DAY
     Route: 048
     Dates: end: 20130617

REACTIONS (4)
  - Concussion [Unknown]
  - Head injury [Unknown]
  - Hypokinesia [Unknown]
  - Bedridden [Unknown]
